FAERS Safety Report 4920292-X (Version None)
Quarter: 2006Q1

REPORT INFORMATION
  Report Type: 
  Country: None (occurrence: None)
  Receive Date: 20060223
  Receipt Date: 20060215
  Transmission Date: 20060701
  Serious: Yes (Hospitalization, Disabling)
  Sender: FDA-Public Use
  Company Number: 434752

PATIENT
  Age: 78 Year
  Sex: Male

DRUGS (15)
  1. KREDEX [Suspect]
     Indication: HYPERTENSION
     Dosage: 25MG TWICE PER DAY
     Route: 048
     Dates: start: 20021015, end: 20040913
  2. NITROGLYCERIN [Suspect]
     Indication: ANGINA PECTORIS
     Dosage: .5MG AS REQUIRED
     Route: 060
     Dates: start: 20021015
  3. LIPITOR [Suspect]
     Indication: BLOOD CHOLESTEROL INCREASED
     Dosage: 10MG PER DAY
     Route: 048
     Dates: start: 20021015, end: 20030615
  4. ALBYL E [Suspect]
     Indication: CARDIOVASCULAR EVENT PROPHYLAXIS
     Dosage: 75MG PER DAY
     Route: 048
     Dates: start: 20021015, end: 20030615
  5. COZAAR [Suspect]
     Indication: HYPERTENSION
     Dosage: 50MG PER DAY
     Route: 048
     Dates: start: 20021015, end: 20030615
  6. PANCREON [Concomitant]
  7. COMBIZYM [Concomitant]
  8. FLUNIPAM [Concomitant]
     Dosage: .5MG AT NIGHT
  9. CREON [Concomitant]
  10. MONOKET [Concomitant]
     Dosage: 50MG PER DAY
     Dates: start: 20041013
  11. SOLDACTONE [Concomitant]
     Route: 042
  12. FURIX [Concomitant]
     Route: 042
  13. ALDACTONE [Concomitant]
     Route: 048
  14. INDERAL [Concomitant]
     Dosage: 10MG TWICE PER DAY
  15. FUROSEMIDE [Concomitant]

REACTIONS (24)
  - ABDOMINAL PAIN [None]
  - ANOREXIA [None]
  - ASCITES [None]
  - ASTHENIA [None]
  - BEDRIDDEN [None]
  - BLOOD BILIRUBIN INCREASED [None]
  - CHROMATURIA [None]
  - DIARRHOEA [None]
  - DRY SKIN [None]
  - FAECAL VOLUME DECREASED [None]
  - FAECES PALE [None]
  - GROIN PAIN [None]
  - HAEMORRHOIDS [None]
  - HEPATIC CIRRHOSIS [None]
  - HEPATIC ENZYME INCREASED [None]
  - INGUINAL HERNIA [None]
  - NAUSEA [None]
  - PALLOR [None]
  - PANCREATIC INSUFFICIENCY [None]
  - SKIN WARM [None]
  - STEATORRHOEA [None]
  - VARICOSE VEIN [None]
  - VOMITING [None]
  - WEIGHT DECREASED [None]
